FAERS Safety Report 17280575 (Version 2)
Quarter: 2022Q1

REPORT INFORMATION
  Report Type: Spontaneous
  Country: US (occurrence: US)
  Receive Date: 20200117
  Receipt Date: 20220223
  Transmission Date: 20220423
  Serious: No
  Sender: FDA-Public Use
  Company Number: US-UCBSA-2019036185

PATIENT
  Age: 4 Month
  Sex: Male

DRUGS (4)
  1. LEVETIRACETAM [Suspect]
     Active Substance: LEVETIRACETAM
     Indication: Seizure
     Dosage: 22 MG/KG
     Route: 042
  2. LEVETIRACETAM [Suspect]
     Active Substance: LEVETIRACETAM
     Dosage: 11 MG/KG AGAIN 4 HOURS LATER
     Route: 042
  3. PHENOBARBITAL [Concomitant]
     Active Substance: PHENOBARBITAL
     Indication: Partial seizures
     Dosage: UNK
     Route: 042
  4. PHENOBARBITAL [Concomitant]
     Active Substance: PHENOBARBITAL
     Dosage: 19 MG/KG

REACTIONS (1)
  - Drug ineffective [Unknown]
